FAERS Safety Report 7125810-1 (Version None)
Quarter: 2010Q4

REPORT INFORMATION
  Report Type: 
  Country: None (occurrence: None)
  Receive Date: 20101129
  Receipt Date: 20101123
  Transmission Date: 20110411
  Serious: Yes (Other)
  Sender: FDA-Public Use
  Company Number: B0686361A

PATIENT
  Age: 49 Year
  Sex: Male

DRUGS (2)
  1. KIVEXA [Suspect]
  2. UNSPECIFIED MEDICATION [Concomitant]

REACTIONS (1)
  - MYOCARDIAL INFARCTION [None]
